FAERS Safety Report 6998108-X (Version None)
Quarter: 2010Q3

REPORT INFORMATION
  Report Type: 
  Country: None (occurrence: None)
  Receive Date: 20100920
  Receipt Date: 20100331
  Transmission Date: 20110219
  Serious: Yes (Hospitalization)
  Sender: FDA-Public Use
  Company Number: US-ASTRAZENECA-2010SE15830

PATIENT
  Age: 14820 Day
  Sex: Male

DRUGS (8)
  1. SEROQUEL [Suspect]
     Indication: BIPOLAR DISORDER
     Dosage: TWO IN THE MORNING AND FOUR IN THE EVENING
     Route: 048
     Dates: start: 20050527
  2. SEROQUEL [Suspect]
     Indication: SUBSTANCE ABUSE
     Dosage: TWO IN THE MORNING AND FOUR IN THE EVENING
     Route: 048
     Dates: start: 20050527
  3. TRAZODONE HCL [Concomitant]
     Dosage: 50 MG TO 75 MG
     Route: 048
     Dates: start: 20050527
  4. FLUOXETINE [Concomitant]
     Indication: BIPOLAR DISORDER
     Dates: start: 20050527
  5. DEPAKOTE [Concomitant]
     Indication: BIPOLAR DISORDER
     Dates: start: 20050527
  6. VISTARIL [Concomitant]
     Indication: ANXIETY
     Dosage: 15 MG EVERY EIGHT HOURS PRN ANXIETY
     Route: 048
     Dates: start: 20050630
  7. VALPROIC ACID [Concomitant]
     Route: 048
     Dates: start: 20050630
  8. PROZAC [Concomitant]
     Dosage: IN MORNING
     Dates: start: 20050630

REACTIONS (7)
  - ATRIAL FIBRILLATION [None]
  - DIABETIC KETOACIDOSIS [None]
  - ELECTROLYTE IMBALANCE [None]
  - HAEMATEMESIS [None]
  - IRON DEFICIENCY ANAEMIA [None]
  - OESOPHAGEAL CANDIDIASIS [None]
  - RENAL FAILURE ACUTE [None]
